FAERS Safety Report 24749375 (Version 2)
Quarter: 2024Q4

REPORT INFORMATION
  Report Type: Spontaneous
  Country: JP (occurrence: JP)
  Receive Date: 20241218
  Receipt Date: 20241223
  Transmission Date: 20250115
  Serious: Yes (Hospitalization)
  Sender: EISAI
  Company Number: JP-Eisai-202305388_LEN-TMC_P_1

PATIENT
  Age: 63 Year
  Sex: Female
  Weight: 39.7 kg

DRUGS (3)
  1. LENVATINIB [Suspect]
     Active Substance: LENVATINIB
     Indication: Thymic carcinoma
     Route: 048
  2. LENVATINIB [Suspect]
     Active Substance: LENVATINIB
     Dosage: ORALLY TAKEN INTERMITTENTLY (RESUMED AFTER EVERY 2-3 DAYS OFF)
     Route: 048
  3. LENVATINIB [Suspect]
     Active Substance: LENVATINIB
     Route: 048

REACTIONS (4)
  - Cardiomyopathy [Recovering/Resolving]
  - Malaise [Unknown]
  - Decreased appetite [Unknown]
  - Cardiac failure [Unknown]
